FAERS Safety Report 7072750-2 (Version None)
Quarter: 2010Q4

REPORT INFORMATION
  Report Type: 
  Country: None (occurrence: None)
  Receive Date: 20101029
  Receipt Date: 20100308
  Transmission Date: 20110411
  Serious: No
  Sender: FDA-Public Use
  Company Number: A0848902A

PATIENT
  Sex: Male

DRUGS (6)
  1. ADVAIR DISKUS 100/50 [Suspect]
     Indication: EMPHYSEMA
     Dosage: 2PUFF TWICE PER DAY
     Route: 055
     Dates: start: 20100101, end: 20100222
  2. NORVASC [Concomitant]
  3. PLAVIX [Concomitant]
  4. ASPIRIN [Concomitant]
  5. METOPROLOL [Concomitant]
  6. NEXIUM [Concomitant]

REACTIONS (4)
  - EAR DISCOMFORT [None]
  - MUSCLE SPASMS [None]
  - MYALGIA [None]
  - NASOPHARYNGITIS [None]
